FAERS Safety Report 6023774-5 (Version None)
Quarter: 2008Q4

REPORT INFORMATION
  Report Type: 
  Country: None (occurrence: None)
  Receive Date: 20081230
  Receipt Date: 20081222
  Transmission Date: 20090506
  Serious: Yes (Hospitalization)
  Sender: FDA-Public Use
  Company Number: JP-ASTRAZENECA-2008AP09875

PATIENT
  Age: 39 Year
  Sex: Female

DRUGS (5)
  1. SEROQUEL [Suspect]
     Dosage: PATIENT TOOK 15 X100 MG TABLETS BELONGING TO HER HUSBAND
     Route: 048
     Dates: start: 20081222, end: 20081222
  2. VEGETAMIN [Suspect]
     Route: 048
     Dates: start: 20081222, end: 20081222
  3. LENDORMIN [Suspect]
     Dosage: 2.5 MG TABLETS
     Route: 048
     Dates: start: 20081222, end: 20081222
  4. SOMELIN [Suspect]
     Dosage: TOTAL NUMBER OF 100 MG TABLETS TAKEN NOT REPORTED
     Route: 048
     Dates: start: 20081222, end: 20081222
  5. GLUCOSE [Suspect]
     Indication: COMA
     Dates: start: 20081222, end: 20081222

REACTIONS (3)
  - COMA [None]
  - HYPERGLYCAEMIA [None]
  - OVERDOSE [None]
